FAERS Safety Report 22022693 (Version 1)
Quarter: 2023Q1

REPORT INFORMATION
  Report Type: Spontaneous
  Country: IN (occurrence: IN)
  Receive Date: 20230222
  Receipt Date: 20230222
  Transmission Date: 20230417
  Serious: Yes (Other)
  Sender: FDA-Public Use
  Company Number: IN-PFIZER INC-PV202200112950

PATIENT
  Age: 62 Year
  Sex: Female

DRUGS (6)
  1. LORLATINIB [Suspect]
     Active Substance: LORLATINIB
     Dosage: UNK
     Dates: end: 202206
  2. LORLATINIB [Suspect]
     Active Substance: LORLATINIB
     Dosage: 100 MG, 1X/DAY
     Route: 048
  3. LORLATINIB [Suspect]
     Active Substance: LORLATINIB
     Dosage: 50 MG AND 75 MG ON ALTERNATE DAY
     Route: 048
  4. PEMETREXED [Concomitant]
     Active Substance: PEMETREXED
     Dosage: UNK
  5. BEVACIZUMAB [Concomitant]
     Active Substance: BEVACIZUMAB
     Dosage: UNK
  6. ROSUVASTATIN CALCIUM [Concomitant]
     Active Substance: ROSUVASTATIN CALCIUM
     Dosage: UNK

REACTIONS (14)
  - Haemoglobin decreased [Unknown]
  - Blood triglycerides increased [Unknown]
  - Headache [Unknown]
  - Epistaxis [Unknown]
  - Oedema peripheral [Unknown]
  - Erythema [Unknown]
  - Blood cholesterol increased [Unknown]
  - Blood glucose increased [Unknown]
  - Back pain [Unknown]
  - White blood cell count increased [Unknown]
  - Blood creatinine increased [Unknown]
  - Neutrophil percentage increased [Unknown]
  - Off label use [Unknown]
  - Neoplasm progression [Unknown]
